FAERS Safety Report 9657085 (Version 3)
Quarter: 2013Q4

REPORT INFORMATION
  Report Type: Spontaneous
  Country: US (occurrence: US)
  Receive Date: 20131030
  Receipt Date: 20131105
  Transmission Date: 20140711
  Serious: Yes (Other)
  Sender: FDA-Public Use
  Company Number: PHEH2013US022080

PATIENT
  Sex: Male

DRUGS (12)
  1. TRILEPTAL [Suspect]
     Dosage: 2 DF, DAILY
  2. XANAX [Concomitant]
     Dosage: UNK UKN, UNK
  3. EFEXOR XL [Concomitant]
     Dosage: UNK UKN, UNK
  4. SIMVASTATIN [Concomitant]
     Dosage: UNK UKN, UNK
  5. WELLBUTRIN [Concomitant]
     Dosage: UNK UKN, UNK
  6. CYMBALTA [Concomitant]
     Dosage: UNK UKN, UNK
  7. NEURONTIN [Concomitant]
     Dosage: UNK UKN, UNK
  8. AMBIEN [Concomitant]
     Dosage: UNK UKN, UNK
  9. ULTRAM                             /01573601/ [Concomitant]
     Dosage: UNK UKN, UNK
  10. CIALIS [Concomitant]
     Dosage: UNK UKN, UNK
  11. SYNTHROID [Concomitant]
     Dosage: UNK UKN, UNK
  12. CELEBREX [Concomitant]
     Dosage: UNK UKN, UNK

REACTIONS (4)
  - Obsessive-compulsive disorder [Unknown]
  - Blood pressure fluctuation [Unknown]
  - Anxiety [Unknown]
  - Depression suicidal [Unknown]
